FAERS Safety Report 23500865 (Version 1)
Quarter: 2024Q1

REPORT INFORMATION
  Report Type: Spontaneous
  Country: CA (occurrence: CA)
  Receive Date: 20240208
  Receipt Date: 20240208
  Transmission Date: 20240409
  Serious: Yes (Other)
  Sender: FDA-Public Use
  Company Number: CA-PFIZER INC-PV202400017865

PATIENT
  Age: 37 Year
  Sex: Female

DRUGS (5)
  1. PAXLOVID [Suspect]
     Active Substance: NIRMATRELVIR\RITONAVIR
     Indication: COVID-19 treatment
     Dosage: UNK
  2. CODEINE [Concomitant]
     Active Substance: CODEINE
     Indication: Joint injury
     Dosage: 30 MG, 4X/DAY
  3. CODEINE [Concomitant]
     Active Substance: CODEINE
     Indication: Pyrexia
  4. TYLENOL [Concomitant]
     Active Substance: ACETAMINOPHEN
     Indication: Joint injury
     Dosage: 4X/DAY
  5. TYLENOL [Concomitant]
     Active Substance: ACETAMINOPHEN
     Indication: Pyrexia

REACTIONS (8)
  - Multiple sclerosis [Unknown]
  - Visual impairment [Recovering/Resolving]
  - Panic attack [Unknown]
  - Neuralgia [Recovering/Resolving]
  - Fatigue [Recovering/Resolving]
  - Anosmia [Recovering/Resolving]
  - Ageusia [Recovering/Resolving]
  - Decreased appetite [Recovering/Resolving]
